FAERS Safety Report 7788414-3 (Version None)
Quarter: 2011Q3

REPORT INFORMATION
  Report Type: 
  Country: None (occurrence: None)
  Receive Date: 20110927
  Receipt Date: 20110921
  Transmission Date: 20111222
  Serious: Yes (Other)
  Sender: FDA-Public Use
  Company Number: 2011SP044736

PATIENT
  Age: 31 Year
  Sex: Female

DRUGS (3)
  1. RHINOCORT [Concomitant]
  2. SYNTHROID [Concomitant]
  3. IMPLANON [Suspect]
     Indication: CONTRACEPTION
     Dosage: 1 DF;SBDE
     Route: 059
     Dates: start: 20110901

REACTIONS (4)
  - IMPLANT SITE PAIN [None]
  - SYNCOPE [None]
  - IMPLANT SITE SWELLING [None]
  - PROCEDURAL COMPLICATION [None]
